FAERS Safety Report 6027118-4 (Version None)
Quarter: 2008Q4

REPORT INFORMATION
  Report Type: 
  Country: None (occurrence: None)
  Receive Date: 20081222
  Receipt Date: 20080908
  Transmission Date: 20090506
  Serious: No
  Sender: FDA-Public Use
  Company Number: US-WYE-H05943908

PATIENT
  Age: 69 Year
  Sex: Male
  Weight: 69.01 kg

DRUGS (5)
  1. PRISTIQ [Suspect]
     Indication: DEPRESSION
     Dosage: 50 MG 1X PER 1 DAY, ORAL
     Route: 048
     Dates: start: 20080101
  2. SIMVASTATIN [Concomitant]
  3. NEXIUM [Concomitant]
  4. TRAZODONE HCL [Concomitant]
  5. HYDROCODONE (HYDROCODONE) [Concomitant]

REACTIONS (3)
  - FATIGUE [None]
  - HEADACHE [None]
  - INSOMNIA [None]
